FAERS Safety Report 5479723-1 (Version None)
Quarter: 2007Q4

REPORT INFORMATION
  Report Type: 
  Country: None (occurrence: None)
  Receive Date: 20071008
  Receipt Date: 20070928
  Transmission Date: 20080405
  Serious: Yes (Death, Other)
  Sender: FDA-Public Use
  Company Number: US-PURDUE-USA_2007_0029418

PATIENT
  Age: 24 Year
  Sex: Male

DRUGS (3)
  1. OXYCONTIN [Suspect]
     Dosage: UNK MG, UNK
  2. XANAX [Suspect]
     Dosage: UNK MG, UNK
  3. MARIJUANA [Suspect]
     Dosage: UNK, UNK

REACTIONS (3)
  - GUN SHOT WOUND [None]
  - HOMICIDE [None]
  - SUBSTANCE ABUSE [None]
